FAERS Safety Report 7396878-2 (Version None)
Quarter: 2011Q2

REPORT INFORMATION
  Report Type: 
  Country: None (occurrence: None)
  Receive Date: 20110406
  Receipt Date: 20110302
  Transmission Date: 20111010
  Serious: No
  Sender: FDA-Public Use
  Company Number: US-BAYER-2011-022065

PATIENT
  Sex: Female

DRUGS (10)
  1. ALEVE [Suspect]
     Dosage: UNK
  2. ZOCOR [Concomitant]
     Dosage: 20 MG, QD
  3. XANAX [Concomitant]
     Dosage: 0.5 MG, TID
  4. NEXIUM [Concomitant]
     Dosage: 40 MG, QD
  5. FEMARA [Concomitant]
     Dosage: 2.5 MG, QD
  6. LASIX [Concomitant]
     Dosage: 40 MG, QD
  7. INSULIN [INSULIN] [Concomitant]
     Dosage: UNK UNK, PRN
  8. METFORMIN [Concomitant]
     Dosage: 500 MG, QID
  9. VERAPAMIL [Concomitant]
     Dosage: 240 MG, QD
  10. PEPCID AC [Concomitant]
     Dosage: 20 MG, QD

REACTIONS (1)
  - NO ADVERSE EVENT [None]
